FAERS Safety Report 23667685 (Version 1)
Quarter: 2024Q1

REPORT INFORMATION
  Report Type: Report from Study
  Country: GB (occurrence: GB)
  Receive Date: 20240325
  Receipt Date: 20240325
  Transmission Date: 20240410
  Serious: Yes (Other)
  Sender: FDA-Public Use
  Company Number: GB-ARGENX-2023-ARGX-GB003447

PATIENT

DRUGS (1)
  1. VYVGART [Suspect]
     Active Substance: EFGARTIGIMOD ALFA-FCAB
     Indication: Muscular weakness
     Dosage: 400 MG, (20MG/ML) VIAL
     Route: 058
     Dates: start: 202309

REACTIONS (6)
  - Dyspnoea at rest [Unknown]
  - Dizziness [Unknown]
  - Vision blurred [Unknown]
  - Dysarthria [Unknown]
  - Dysphonia [Unknown]
  - Dyspnoea [Unknown]
